FAERS Safety Report 13598641 (Version 1)
Quarter: 2017Q2

REPORT INFORMATION
  Report Type: Other
  Country: US (occurrence: US)
  Receive Date: 20170531
  Receipt Date: 20170531
  Transmission Date: 20170830
  Serious: Yes (Other)
  Sender: FDA-Public Use
  Company Number: US-IMPRIMIS NJOF-2021422

PATIENT
  Age: 83 Year
  Sex: Female
  Weight: 54.55 kg

DRUGS (3)
  1. TRIAMCINOLONE-MOXIFLOXACIN (15/1) MG/ML [Suspect]
     Active Substance: MOXIFLOXACIN\TRIAMCINOLONE
     Indication: PROPHYLAXIS
     Route: 031
     Dates: start: 20170420, end: 20170420
  2. TRIAMCINOLONE-MOXIFLOXACIN (15/1) MG/ML [Suspect]
     Active Substance: MOXIFLOXACIN\TRIAMCINOLONE
     Indication: EYE OPERATION
     Route: 031
     Dates: start: 20170420, end: 20170420
  3. TRIAMCINOLONE-MOXIFLOXACIN (15/1) MG/ML [Suspect]
     Active Substance: MOXIFLOXACIN\TRIAMCINOLONE
     Indication: POST PROCEDURAL INFECTION
     Route: 031
     Dates: start: 20170420, end: 20170420

REACTIONS (3)
  - Staphylococcus test positive [None]
  - Endophthalmitis [None]
  - Visual acuity reduced [Unknown]

NARRATIVE: CASE EVENT DATE: 20170424
